FAERS Safety Report 8558588-5 (Version None)
Quarter: 2012Q3

REPORT INFORMATION
  Report Type: 
  Country: None (occurrence: None)
  Receive Date: 20120801
  Receipt Date: 20120723
  Transmission Date: 20120928
  Serious: Yes (Life-Threatening)
  Sender: FDA-Public Use
  Company Number: FR-BAXTER-2012BAX012520

PATIENT
  Sex: Female

DRUGS (10)
  1. BICNU [Suspect]
     Indication: MULTIPLE MYELOMA
     Route: 042
     Dates: start: 20000101, end: 20000101
  2. ALKERAN [Suspect]
     Indication: MULTIPLE MYELOMA
     Route: 042
     Dates: start: 20000101, end: 20000101
  3. DEXAMETHASONE [Suspect]
     Indication: MULTIPLE MYELOMA
     Route: 042
     Dates: start: 20040101, end: 20080101
  4. CYCLOPHOSPHAMIDE [Suspect]
     Indication: MULTIPLE MYELOMA
     Route: 042
     Dates: start: 20000101, end: 20000101
  5. VEPESID [Suspect]
     Indication: MULTIPLE MYELOMA
     Route: 042
     Dates: start: 20000101, end: 20000101
  6. DEXAMETHASONE [Suspect]
     Route: 042
     Dates: start: 20080408, end: 20080901
  7. PREDNISONE [Suspect]
     Indication: MULTIPLE MYELOMA
     Route: 042
     Dates: start: 20000101, end: 20000101
  8. VINCRISTINE [Suspect]
     Indication: MULTIPLE MYELOMA
     Route: 042
     Dates: start: 20000101, end: 20000101
  9. VELCADE [Suspect]
     Indication: MULTIPLE MYELOMA
     Route: 042
     Dates: start: 20080408, end: 20080601
  10. DOXORUBICIN HYDROCHLORIDE [Suspect]
     Indication: MULTIPLE MYELOMA
     Route: 042
     Dates: start: 20000101, end: 20000101

REACTIONS (2)
  - MYELODYSPLASTIC SYNDROME [None]
  - ACUTE MYELOID LEUKAEMIA [None]
